FAERS Safety Report 24121059 (Version 1)
Quarter: 2024Q3

REPORT INFORMATION
  Report Type: Report from Study
  Country: US (occurrence: None)
  Receive Date: 20240722
  Receipt Date: 20240722
  Transmission Date: 20241017
  Serious: Yes (Other)
  Sender: ASTRAZENECA
  Company Number: 2021A247917

PATIENT
  Sex: Male

DRUGS (1)
  1. FASENRA [Suspect]
     Active Substance: BENRALIZUMAB
     Indication: Asthma
     Dosage: INJECT ONE PEN (30 MG) UNDER THE SKIN AT WEEKS 0, 4, 8 THEN EVERY 8 WEEKS THEREAFTER.30.0MG UNKNOWN
     Route: 058
     Dates: start: 202101

REACTIONS (6)
  - Tooth abscess [Unknown]
  - Fall [Unknown]
  - Ankle fracture [Unknown]
  - Stress fracture [Unknown]
  - Hypoacusis [Unknown]
  - Asthma [Unknown]
